FAERS Safety Report 6072148-X (Version None)
Quarter: 2009Q1

REPORT INFORMATION
  Report Type: 
  Country: None (occurrence: None)
  Receive Date: 20090210
  Receipt Date: 20090202
  Transmission Date: 20090719
  Serious: Yes (Life-Threatening, Hospitalization)
  Sender: FDA-Public Use
  Company Number: A0765081A

PATIENT
  Age: 30 Year
  Sex: Female

DRUGS (4)
  1. ARIXTRA [Suspect]
     Indication: ANTITHROMBIN III DEFICIENCY
     Dosage: 7.5MG PER DAY
     Route: 058
     Dates: start: 20080901
  2. PAIN MEDICATIONS [Concomitant]
  3. ASPIRIN [Concomitant]
  4. OXYCODONE HCL [Concomitant]

REACTIONS (6)
  - DEEP VEIN THROMBOSIS [None]
  - DRUG EXPOSURE DURING PREGNANCY [None]
  - DRUG LEVEL DECREASED [None]
  - PULMONARY EMBOLISM [None]
  - TREATMENT NONCOMPLIANCE [None]
  - VAGINAL HAEMORRHAGE [None]
